FAERS Safety Report 7993972-X (Version None)
Quarter: 2011Q4

REPORT INFORMATION
  Report Type: 
  Country: None (occurrence: None)
  Receive Date: 20111220
  Receipt Date: 20111208
  Transmission Date: 20120403
  Serious: Yes (Other)
  Sender: FDA-Public Use
  Company Number: DE-BAYER-2011-092764

PATIENT
  Age: 36 Year
  Sex: Female
  Weight: 105 kg

DRUGS (1)
  1. MIRENA [Suspect]
     Dosage: 20 ?G, CONT
     Dates: start: 20091214

REACTIONS (3)
  - PREGNANCY WITH CONTRACEPTIVE DEVICE [None]
  - GESTATIONAL DIABETES [None]
  - DEVICE DISLOCATION [None]
